FAERS Safety Report 13314854 (Version 2)
Quarter: 2017Q1

REPORT INFORMATION
  Report Type: Spontaneous
  Country: AT (occurrence: AT)
  Receive Date: 20170309
  Receipt Date: 20170316
  Transmission Date: 20170428
  Serious: Yes (Other)
  Sender: FDA-Public Use
  Company Number: AT-GILEAD-2017-0261493

PATIENT
  Age: 62 Year
  Sex: Male

DRUGS (4)
  1. DACLATASVIR. [Concomitant]
     Active Substance: DACLATASVIR
     Dosage: UNK
  2. RIBAVIRIN. [Concomitant]
     Active Substance: RIBAVIRIN
     Dosage: UNK
  3. HARVONI [Suspect]
     Active Substance: LEDIPASVIR\SOFOSBUVIR
     Indication: CHRONIC HEPATITIS C
     Dosage: UNK
     Route: 065
  4. SOFOSBUVIR [Suspect]
     Active Substance: SOFOSBUVIR
     Indication: CHRONIC HEPATITIS C
     Dosage: UNK
     Route: 065

REACTIONS (4)
  - Viral mutation identified [Unknown]
  - Renal impairment [Unknown]
  - Hepatocellular carcinoma [Unknown]
  - Bladder cancer [Unknown]

NARRATIVE: CASE EVENT DATE: 2016
